FAERS Safety Report 5284698-4 (Version None)
Quarter: 2007Q1

REPORT INFORMATION
  Report Type: 
  Country: None (occurrence: None)
  Receive Date: 20061222
  Receipt Date: 20061024
  Transmission Date: 20070707
  Serious: Yes (Other)
  Sender: FDA-Public Use
  Company Number: CHPA2006US10749

PATIENT
  Age: 91 Year
  Sex: Female
  Weight: 43.1 kg

DRUGS (12)
  1. TRANSDERM SCOP [Suspect]
     Indication: SALIVARY HYPERSECRETION
     Dosage: 1.5 MG, Q72H, TRANSDERMAL
     Route: 062
     Dates: start: 20061020, end: 20061022
  2. LANOXIN [Concomitant]
  3. AVAPRO [Concomitant]
  4. LASIX [Concomitant]
  5. NAMENDA [Concomitant]
  6. PROTONIX [Concomitant]
  7. CALCIUM (CALCIUM) [Concomitant]
  8. POTASSIUM (POTASSIUM) [Concomitant]
  9. CENTRUM SILVER (ASCORBIC ACID, CALCIUM, MINERALS NOS, RETINOL, TOCOPHE [Concomitant]
  10. ASPIRIN [Concomitant]
  11. NITROGLYCERIN [Concomitant]
  12. STARLIX [Concomitant]

REACTIONS (9)
  - ABNORMAL BEHAVIOUR [None]
  - ADVERSE DRUG REACTION [None]
  - ASTHENIA [None]
  - CONFUSIONAL STATE [None]
  - DIZZINESS [None]
  - HALLUCINATION [None]
  - HEART RATE INCREASED [None]
  - INSOMNIA [None]
  - TREMOR [None]
